FAERS Safety Report 10619512 (Version 2)
Quarter: 2015Q1

REPORT INFORMATION
  Report Type: Spontaneous
  Country: DE (occurrence: DE)
  Receive Date: 20141202
  Receipt Date: 20150109
  Transmission Date: 20150720
  Serious: Yes (Hospitalization, Congenital Anomaly, Other)
  Sender: FDA-Public Use
  Company Number: DE-ASTRAZENECA-2014SE90739

PATIENT
  Sex: Male
  Weight: 1.4 kg

DRUGS (6)
  1. CANDESARTAN [Suspect]
     Active Substance: CANDESARTAN
     Indication: CARDIAC FAILURE
     Route: 064
     Dates: start: 20130629, end: 20131218
  2. CELESTAN [Concomitant]
     Active Substance: BETAMETHASONE
     Indication: MATERNAL THERAPY TO ENHANCE FOETAL LUNG MATURITY
     Route: 064
     Dates: start: 20131215, end: 20131217
  3. METOPROLOL [Suspect]
     Active Substance: METOPROLOL
     Indication: CARDIAC FAILURE
     Route: 064
  4. METOPROLOL [Suspect]
     Active Substance: METOPROLOL
     Indication: CARDIAC FAILURE
     Route: 064
     Dates: start: 20131213, end: 20140122
  5. BISOPROLOL [Concomitant]
     Active Substance: BISOPROLOL
     Indication: CARDIAC FAILURE
     Route: 064
     Dates: start: 20130629, end: 20131212
  6. TORASEMID [Concomitant]
     Active Substance: TORSEMIDE
     Indication: CARDIAC FAILURE
     Route: 064
     Dates: start: 20130629, end: 20140122

REACTIONS (6)
  - Patent ductus arteriosus [Recovered/Resolved]
  - Atrial septal defect [Unknown]
  - Pulmonary hypertension [Unknown]
  - Oedema neonatal [Recovering/Resolving]
  - Premature baby [Unknown]
  - Pulmonary hypoplasia [Unknown]

NARRATIVE: CASE EVENT DATE: 20140122
